FAERS Safety Report 8281420-4 (Version None)
Quarter: 2012Q2

REPORT INFORMATION
  Report Type: 
  Country: None (occurrence: None)
  Receive Date: 20120411
  Receipt Date: 20120411
  Transmission Date: 20120825
  Serious: Yes (Hospitalization)
  Sender: FDA-Public Use
  Company Number: None

PATIENT
  Sex: Female
  Weight: 77.3 kg

DRUGS (1)
  1. ADVAIR DISKUS 250/50 [Suspect]
     Indication: CHRONIC OBSTRUCTIVE PULMONARY DISEASE
     Dosage: 250/50 2 TIMES A DAY  ORAL
     Route: 048
     Dates: start: 20070201

REACTIONS (5)
  - NO REACTION ON PREVIOUS EXPOSURE TO DRUG [None]
  - NERVOUSNESS [None]
  - PSYCHOTIC DISORDER [None]
  - AGITATION [None]
  - PRODUCT QUALITY ISSUE [None]
